FAERS Safety Report 5563838-3 (Version None)
Quarter: 2007Q4

REPORT INFORMATION
  Report Type: 
  Country: None (occurrence: None)
  Receive Date: 20071217
  Receipt Date: 20070905
  Transmission Date: 20080405
  Serious: No
  Sender: FDA-Public Use
  Company Number: US-ASTRAZENECA-2007UW20911

PATIENT
  Age: 74 Year
  Sex: Female
  Weight: 76.7 kg

DRUGS (5)
  1. CRESTOR [Suspect]
     Indication: BLOOD CHOLESTEROL INCREASED
     Route: 048
     Dates: start: 20070807
  2. HYZAAR [Concomitant]
  3. CENTRUM SILVER VITAMINS [Concomitant]
  4. CALCIUM [Concomitant]
  5. ASPIRIN [Concomitant]

REACTIONS (4)
  - ANXIETY [None]
  - FATIGUE [None]
  - NERVOUSNESS [None]
  - TREMOR [None]
